FAERS Safety Report 24156539 (Version 4)
Quarter: 2025Q2

REPORT INFORMATION
  Report Type: Spontaneous
  Country: PL (occurrence: PL)
  Receive Date: 20240731
  Receipt Date: 20250417
  Transmission Date: 20250716
  Serious: Yes (Other)
  Sender: BAUSCH AND LOMB
  Company Number: PL-ROCHE-10000012563

PATIENT
  Age: 49 Year
  Sex: Male

DRUGS (19)
  1. DEXAMETHASONE [Suspect]
     Active Substance: DEXAMETHASONE
     Indication: Acute myeloid leukaemia
     Route: 065
  2. SORAFENIB [Suspect]
     Active Substance: SORAFENIB
     Indication: Antifungal prophylaxis
     Dosage: 400 MG, BID
     Route: 048
  3. SORAFENIB [Suspect]
     Active Substance: SORAFENIB
     Indication: Acute myeloid leukaemia
  4. CYCLOPHOSPHAMIDE [Suspect]
     Active Substance: CYCLOPHOSPHAMIDE
     Indication: Acute myeloid leukaemia
     Route: 065
  5. CYCLOSPORINE [Suspect]
     Active Substance: CYCLOSPORINE
     Indication: Acute myeloid leukaemia
     Route: 065
  6. CYTARABINE [Suspect]
     Active Substance: CYTARABINE
     Indication: Acute myeloid leukaemia
     Dosage: 200 MG/M2, Q24H (DAYS 1-7)
     Route: 042
  7. MYCOPHENOLATE MOFETIL [Suspect]
     Active Substance: MYCOPHENOLATE MOFETIL
     Indication: Acute myeloid leukaemia
     Route: 065
  8. MYCOPHENOLATE MOFETIL [Suspect]
     Active Substance: MYCOPHENOLATE MOFETIL
     Indication: Antifungal prophylaxis
  9. DAUNORUBICIN [Suspect]
     Active Substance: DAUNORUBICIN
     Indication: Acute myeloid leukaemia
     Route: 042
  10. MIDOSTAURIN [Suspect]
     Active Substance: MIDOSTAURIN
     Indication: Acute myeloid leukaemia
     Route: 065
  11. METHOTREXATE [Suspect]
     Active Substance: METHOTREXATE
     Indication: Acute myeloid leukaemia
     Route: 065
  12. TACROLIMUS [Suspect]
     Active Substance: TACROLIMUS
     Indication: Antifungal prophylaxis
     Route: 065
  13. TACROLIMUS [Suspect]
     Active Substance: TACROLIMUS
     Indication: Acute myeloid leukaemia
  14. IDARUBICIN [Suspect]
     Active Substance: IDARUBICIN
     Indication: Acute myeloid leukaemia
     Route: 065
  15. BUSULFAN [Suspect]
     Active Substance: BUSULFAN
     Indication: Prophylaxis
     Dosage: 3.2 MG/M2, QD (-6 DO -3)
     Route: 065
  16. FLUDARABINE PHOSPHATE [Suspect]
     Active Substance: FLUDARABINE PHOSPHATE
     Indication: Acute myeloid leukaemia
     Dosage: 30 MG/M2, QD (-6 DO -2)
     Route: 065
  17. METHOTREXATE [Suspect]
     Active Substance: METHOTREXATE
     Indication: Antifungal prophylaxis
     Route: 065
  18. BUSULFAN [Suspect]
     Active Substance: BUSULFAN
     Indication: Acute myeloid leukaemia
     Dosage: 3.2 MG/M2, QD (-6 DO -3)
     Route: 065
  19. POSACONAZOLE [Concomitant]
     Active Substance: POSACONAZOLE
     Indication: Product used for unknown indication

REACTIONS (14)
  - Graft versus host disease [Unknown]
  - Acute myeloid leukaemia recurrent [Unknown]
  - Anaemia [Unknown]
  - Febrile neutropenia [Unknown]
  - Thrombocytopenia [Unknown]
  - Neutropenia [Unknown]
  - Pyrexia [Unknown]
  - Diarrhoea [Unknown]
  - Pancytopenia [Unknown]
  - Cytomegalovirus infection reactivation [Unknown]
  - Urinary tract infection [Unknown]
  - Headache [Unknown]
  - Device related infection [Unknown]
  - Rash maculo-papular [Unknown]

NARRATIVE: CASE EVENT DATE: 20201201
